FAERS Safety Report 19566898 (Version 4)
Quarter: 2022Q1

REPORT INFORMATION
  Report Type: Other
  Country: JP (occurrence: JP)
  Receive Date: 20210716
  Receipt Date: 20220211
  Transmission Date: 20220423
  Serious: Yes (Other)
  Sender: FDA-Public Use
  Company Number: JP-CHUGAI-2021005633AA

PATIENT
  Age: 61 Year
  Sex: Male
  Weight: 63.2 kg

DRUGS (1)
  1. ENTRECTINIB [Suspect]
     Active Substance: ENTRECTINIB
     Indication: Non-small cell lung cancer
     Dosage: MOST RECENT DOSE: 22/SEP/2021
     Route: 048
     Dates: start: 20210628, end: 20210922

REACTIONS (6)
  - Renal impairment [Not Recovered/Not Resolved]
  - Hypertriglyceridaemia [Not Recovered/Not Resolved]
  - Weight increased [Not Recovered/Not Resolved]
  - Hyperuricaemia [Not Recovered/Not Resolved]
  - Myalgia [Unknown]
  - Taste disorder [Unknown]

NARRATIVE: CASE EVENT DATE: 20210701
